FAERS Safety Report 4501894-1 (Version None)
Quarter: 2004Q4

REPORT INFORMATION
  Report Type: 
  Country: None (occurrence: None)
  Receive Date: 20041116
  Receipt Date: 20041110
  Transmission Date: 20050328
  Serious: Yes (Hospitalization)
  Sender: FDA-Public Use
  Company Number: 200421277GDDC

PATIENT
  Age: 42 Year
  Sex: Female

DRUGS (3)
  1. DDAVP [Suspect]
     Indication: THROMBOTIC THROMBOCYTOPENIC PURPURA
     Route: 042
  2. METHYLPREDNISOLONE [Concomitant]
     Indication: THROMBOTIC THROMBOCYTOPENIC PURPURA
     Route: 042
  3. VINCRISTINE [Concomitant]
     Indication: THROMBOTIC THROMBOCYTOPENIC PURPURA
     Route: 042

REACTIONS (9)
  - APHASIA [None]
  - BLOOD BILIRUBIN INCREASED [None]
  - BLOOD LACTATE DEHYDROGENASE INCREASED [None]
  - HAEMOGLOBIN DECREASED [None]
  - HEADACHE [None]
  - HYPOAESTHESIA [None]
  - PLATELET COUNT DECREASED [None]
  - PYREXIA [None]
  - THROMBOTIC THROMBOCYTOPENIC PURPURA [None]
